FAERS Safety Report 5810665-5 (Version None)
Quarter: 2008Q3

REPORT INFORMATION
  Report Type: 
  Country: None (occurrence: None)
  Receive Date: 20080715
  Receipt Date: 20080710
  Transmission Date: 20090109
  Serious: Yes (Hospitalization)
  Sender: FDA-Public Use
  Company Number: TN-BOEHRINGER INGELHEIM GMBH, GERMANY-2008-BP-10742RO

PATIENT
  Age: 53 Year
  Sex: Female

DRUGS (1)
  1. TERBINAFINE HCL [Suspect]

REACTIONS (2)
  - ACUTE GENERALISED EXANTHEMATOUS PUSTULOSIS [None]
  - CHEILITIS [None]
